FAERS Safety Report 21768503 (Version 1)
Quarter: 2022Q4

REPORT INFORMATION
  Report Type: Spontaneous
  Country: US (occurrence: None)
  Receive Date: 20221221
  Receipt Date: 20221221
  Transmission Date: 20230113
  Serious: Yes (Death)
  Sender: FDA-Public Use
  Company Number: None

PATIENT
  Age: 63 Year
  Sex: Male

DRUGS (1)
  1. TACROLIMUS [Suspect]
     Active Substance: TACROLIMUS
     Indication: Interstitial lung disease
     Dosage: FREQUENCY : DAILY;?
     Route: 048
     Dates: start: 20220715, end: 20221103

REACTIONS (1)
  - Pneumonia [None]

NARRATIVE: CASE EVENT DATE: 20221103
